FAERS Safety Report 4327847-4 (Version None)
Quarter: 2004Q1

REPORT INFORMATION
  Report Type: 
  Country: None (occurrence: None)
  Receive Date: 20040325
  Receipt Date: 20040309
  Transmission Date: 20041129
  Serious: Yes (Life-Threatening)
  Sender: FDA-Public Use
  Company Number: AU-JNJFOC-20040304367

PATIENT
  Age: 23 Year
  Sex: Female

DRUGS (7)
  1. TRAMADOL HCL [Suspect]
     Dosage: 100 MG
     Dates: start: 20030710, end: 20030710
  2. FENTANYL [Suspect]
     Dosage: 100 MG
     Dates: start: 20030710, end: 20030710
  3. SUXAMETHONIUM BROMIDE (SUXAMETHONIUM BROMIDE) [Suspect]
     Dosage: 100 MG
     Dates: start: 20030710, end: 20030710
  4. SEVOFLURANE [Suspect]
     Dates: start: 20030710, end: 20030710
  5. METOCLOPRAMIDE HYDROCHLORIDE [Suspect]
     Dosage: 10 MG
     Dates: start: 20030710, end: 20030710
  6. MIDAZOLAM HCL [Suspect]
     Dosage: 2 MG
     Dates: start: 20030710, end: 20030710
  7. PROPOFOL [Suspect]
     Dosage: 200 MG
     Dates: start: 20030710, end: 20030710

REACTIONS (1)
  - ANAPHYLACTIC REACTION [None]
